FAERS Safety Report 19290278 (Version 1)
Quarter: 2021Q2

REPORT INFORMATION
  Report Type: Spontaneous
  Country: FR (occurrence: FR)
  Receive Date: 20210522
  Receipt Date: 20210522
  Transmission Date: 20210717
  Serious: Yes (Other)
  Sender: FDA-Public Use
  Company Number: FR-ALXN-A202105899

PATIENT
  Age: 45 Year
  Sex: Male
  Weight: 127 kg

DRUGS (1)
  1. SOLIRIS [Suspect]
     Active Substance: ECULIZUMAB
     Indication: PAROXYSMAL NOCTURNAL HAEMOGLOBINURIA
     Dosage: 1200 MG, UNK
     Route: 042
     Dates: start: 200809

REACTIONS (2)
  - Pleural effusion [Unknown]
  - Pleural fibrosis [Unknown]

NARRATIVE: CASE EVENT DATE: 202006
